FAERS Safety Report 5586253-5 (Version None)
Quarter: 2007Q4

REPORT INFORMATION
  Report Type: 
  Country: None (occurrence: None)
  Receive Date: 20071212
  Receipt Date: 20070511
  Transmission Date: 20080405
  Serious: Yes (Hospitalization, Other)
  Sender: FDA-Public Use
  Company Number: USA-2007-0027342

PATIENT
  Sex: Male

DRUGS (1)
  1. OXYCONTIN [Suspect]
     Indication: PAIN

REACTIONS (4)
  - BLOOD PRESSURE INCREASED [None]
  - DEPENDENCE [None]
  - INFLUENZA LIKE ILLNESS [None]
  - WITHDRAWAL SYNDROME [None]
